FAERS Safety Report 5891470-0 (Version None)
Quarter: 2008Q3

REPORT INFORMATION
  Report Type: 
  Country: None (occurrence: None)
  Receive Date: 20080922
  Receipt Date: 20080910
  Transmission Date: 20090109
  Serious: Yes (Hospitalization)
  Sender: FDA-Public Use
  Company Number: FR-WYE-H06026608

PATIENT
  Sex: Male

DRUGS (13)
  1. CORDARONE [Suspect]
     Indication: HEART TRANSPLANT
     Dosage: 150 TO 450 MG DAILY
     Route: 042
     Dates: start: 20080307, end: 20080312
  2. NEORAL [Interacting]
     Indication: HEART TRANSPLANT
     Route: 048
     Dates: start: 20080301, end: 20080311
  3. NEORAL [Interacting]
     Route: 048
     Dates: start: 20080312, end: 20080316
  4. NEORAL [Interacting]
     Route: 048
     Dates: start: 20080317, end: 20080318
  5. NEORAL [Interacting]
     Route: 048
     Dates: start: 20080319, end: 20080321
  6. NEORAL [Interacting]
     Route: 042
     Dates: start: 20080322, end: 20080324
  7. NEORAL [Interacting]
     Dosage: NOT PROVIDED
     Route: 042
     Dates: start: 20080325, end: 20080328
  8. NEORAL [Interacting]
     Dosage: DOSE VARIED
     Route: 042
     Dates: start: 20080329
  9. CELLCEPT [Concomitant]
     Indication: HEART TRANSPLANT
     Dosage: 3 GRAMS
     Dates: start: 20080301
  10. IMOVANE [Concomitant]
     Indication: PSYCHOTIC DISORDER
     Dosage: NOT PROVIDED
     Route: 048
  11. RIVOTRIL [Concomitant]
     Indication: PSYCHOTIC DISORDER
  12. RIFADIN [Interacting]
     Indication: LUNG INFECTION
     Dates: start: 20080315, end: 20080317
  13. UMULINE [Concomitant]
     Indication: TYPE 1 DIABETES MELLITUS
     Dosage: NOT PROVIDED
     Route: 058

REACTIONS (2)
  - DRUG INTERACTION [None]
  - IMMUNOSUPPRESSANT DRUG LEVEL DECREASED [None]
